FAERS Safety Report 19720437 (Version 2)
Quarter: 2021Q3

REPORT INFORMATION
  Report Type: Report from Study
  Country: GB (occurrence: GB)
  Receive Date: 20210818
  Receipt Date: 20210925
  Transmission Date: 20211014
  Serious: Yes (Other)
  Sender: FDA-Public Use
  Company Number: GB-UCBSA-2021032928

PATIENT
  Age: 56 Year
  Sex: Female

DRUGS (5)
  1. CERTOLIZUMAB PEGOL ASP AUTOCLICKS [Suspect]
     Active Substance: CERTOLIZUMAB PEGOL
     Indication: AXIAL SPONDYLOARTHRITIS
     Dosage: 400 MILLIGRAM, EV 2 WEEKS(QOW)
     Route: 058
     Dates: start: 20210218
  2. OMEPRAZOLE. [Concomitant]
     Active Substance: OMEPRAZOLE
     Indication: PRODUCT USED FOR UNKNOWN INDICATION
     Dosage: 20 MILLIGRAM, ONCE DAILY (QD)
     Route: 048
  3. CERTOLIZUMAB PEGOL ASP AUTOCLICKS [Suspect]
     Active Substance: CERTOLIZUMAB PEGOL
     Dosage: 200 MILLIGRAM, EV 2 WEEKS(QOW)
     Route: 058
     Dates: start: 202103, end: 20210708
  4. DICLOFENAC [Concomitant]
     Active Substance: DICLOFENAC
     Indication: ANKYLOSING SPONDYLITIS
     Dosage: 75 MILLIGRAM, 2X/DAY (BID)
     Route: 048
  5. ADCAL D3 [Concomitant]
     Active Substance: CALCIUM CARBONATE\CHOLECALCIFEROL
     Indication: OSTEOPENIA
     Dosage: 750 MILLIGRAM, 4X/DAY (QID)
     Route: 048

REACTIONS (5)
  - Fatigue [Recovering/Resolving]
  - Mouth ulceration [Recovering/Resolving]
  - Axial spondyloarthritis [Recovering/Resolving]
  - Therapeutic response shortened [Unknown]
  - Hip surgery [Recovering/Resolving]

NARRATIVE: CASE EVENT DATE: 2021
